FAERS Safety Report 4445738-5 (Version None)
Quarter: 2004Q3

REPORT INFORMATION
  Report Type: 
  Country: None (occurrence: None)
  Receive Date: 20040910
  Receipt Date: 20040830
  Transmission Date: 20050211
  Serious: Yes (Hospitalization)
  Sender: FDA-Public Use
  Company Number: US-JNJFOC-20040405739

PATIENT
  Sex: Female

DRUGS (9)
  1. DURAGESIC [Suspect]
     Route: 062
  2. DURAGESIC [Suspect]
     Route: 062
  3. DURAGESIC [Suspect]
     Route: 062
  4. SINGULAIR [Concomitant]
  5. HYZAAR [Concomitant]
     Route: 049
  6. HYZAAR [Concomitant]
     Indication: HYPERTENSION
     Route: 049
  7. VIOXX [Concomitant]
  8. CALCIUM [Concomitant]
  9. MULTIVITAMIN [Concomitant]

REACTIONS (5)
  - CARDIAC FAILURE CONGESTIVE [None]
  - FALL [None]
  - HIP FRACTURE [None]
  - INCOHERENT [None]
  - OVERDOSE [None]
